FAERS Safety Report 19149220 (Version 1)
Quarter: 2021Q2

REPORT INFORMATION
  Report Type: Spontaneous
  Country: FR (occurrence: FR)
  Receive Date: 20210417
  Receipt Date: 20210417
  Transmission Date: 20210717
  Serious: Yes (Other)
  Sender: FDA-Public Use
  Company Number: FR-JNJFOC-20210431688

PATIENT
  Age: 14 Year
  Sex: Female
  Weight: 40 kg

DRUGS (1)
  1. TRAMADOL HYDROCHLORIDE. [Suspect]
     Active Substance: TRAMADOL HYDROCHLORIDE
     Indication: PAIN
     Dosage: 16 DROP, ONCE
     Route: 048
     Dates: start: 20210308, end: 20210308

REACTIONS (9)
  - Vision blurred [Recovered/Resolved]
  - Tachypnoea [Recovered/Resolved]
  - Feeling abnormal [Recovering/Resolving]
  - Bradycardia [Recovered/Resolved]
  - Fatigue [Not Recovered/Not Resolved]
  - Nausea [Not Recovered/Not Resolved]
  - Loss of consciousness [Recovered/Resolved]
  - Dizziness [Recovering/Resolving]
  - Tremor [Recovering/Resolving]

NARRATIVE: CASE EVENT DATE: 20210308
